FAERS Safety Report 5633220-9 (Version None)
Quarter: 2008Q1

REPORT INFORMATION
  Report Type: 
  Country: None (occurrence: None)
  Receive Date: 20080221
  Receipt Date: 20080208
  Transmission Date: 20080703
  Serious: Yes (Disabling)
  Sender: FDA-Public Use
  Company Number: HN-BAYER-200811341LA

PATIENT
  Age: 64 Year
  Sex: Female
  Weight: 66 kg

DRUGS (9)
  1. NEXAVAR [Suspect]
     Indication: HEPATIC NEOPLASM MALIGNANT
     Dosage: AS USED: 200 MG
     Route: 048
     Dates: start: 20080123, end: 20080201
  2. GEMZAR [Concomitant]
     Indication: HEPATIC NEOPLASM MALIGNANT
     Route: 042
  3. CISPLATIN [Concomitant]
     Indication: HEPATIC NEOPLASM MALIGNANT
     Route: 042
  4. MANNITOL [Concomitant]
     Indication: PROPHYLAXIS
     Route: 042
  5. DEXAMETHASONE TAB [Concomitant]
     Indication: VOMITING
     Route: 040
  6. KYTRIL [Concomitant]
     Indication: VOMITING
     Route: 040
  7. EMEND [Concomitant]
     Indication: VOMITING
     Route: 048
  8. EMEND [Concomitant]
     Route: 048
  9. INSULIN [Concomitant]
     Indication: TYPE 2 DIABETES MELLITUS
     Route: 058
     Dates: start: 20070101

REACTIONS (5)
  - AGGRESSION [None]
  - AGNOSIA [None]
  - ASTHENIA [None]
  - CONFUSIONAL STATE [None]
  - DISORIENTATION [None]
